FAERS Safety Report 10091726 (Version 1)
Quarter: 2014Q2

REPORT INFORMATION
  Report Type: Spontaneous
  Country: US (occurrence: US)
  Receive Date: 20140421
  Receipt Date: 20140421
  Transmission Date: 20141212
  Serious: No
  Sender: FDA-Public Use
  Company Number: US-PURDUE-USA-2013-0109418

PATIENT
  Sex: Male

DRUGS (2)
  1. OXYCODONE HCL IR CAPSULES [Suspect]
     Indication: PAIN
     Dosage: 15 MG, BID
     Route: 048
  2. MS CONTIN TABLETS [Suspect]
     Indication: PAIN
     Dosage: 60 MG, BID
     Route: 048

REACTIONS (4)
  - Drug withdrawal syndrome [Not Recovered/Not Resolved]
  - Pain [Not Recovered/Not Resolved]
  - Hypoaesthesia [Not Recovered/Not Resolved]
  - Malaise [Not Recovered/Not Resolved]
